FAERS Safety Report 23251401 (Version 1)
Quarter: 2023Q4

REPORT INFORMATION
  Report Type: Spontaneous
  Country: US (occurrence: None)
  Receive Date: 20231130
  Receipt Date: 20231130
  Transmission Date: 20240110
  Serious: Yes (Hospitalization)
  Sender: FDA-Public Use
  Company Number: None

PATIENT
  Sex: Male

DRUGS (5)
  1. MYCOPHENOLATE MOFETIL [Suspect]
     Active Substance: MYCOPHENOLATE MOFETIL
     Indication: Chronic kidney disease
     Dosage: OTHER FREQUENCY : 4 TIMES A DAY;?
     Route: 048
     Dates: start: 202012
  2. NORMAL SALINE FLUSH (5VIL) [Concomitant]
  3. TACROLIMUS [Concomitant]
     Active Substance: TACROLIMUS
  4. DIPHENHYDRAMINE (ALLERGY) [Concomitant]
  5. PANZYGA [Concomitant]
     Active Substance: HUMAN IMMUNOGLOBULIN G

REACTIONS (1)
  - COVID-19 [None]
